FAERS Safety Report 6588361-9 (Version None)
Quarter: 2010Q1

REPORT INFORMATION
  Report Type: 
  Country: None (occurrence: None)
  Receive Date: 20100218
  Receipt Date: 20100208
  Transmission Date: 20100710
  Serious: Yes (Hospitalization)
  Sender: FDA-Public Use
  Company Number: JP-ASTRAZENECA-2009SE33601

PATIENT
  Age: 77 Year
  Sex: Male

DRUGS (19)
  1. MEROPENEM [Suspect]
     Indication: MENINGITIS
     Route: 041
     Dates: start: 20091113, end: 20091127
  2. OMEPRAL [Concomitant]
     Indication: GASTRIC ULCER
     Dates: start: 20091118, end: 20091120
  3. URINORM [Concomitant]
     Indication: BENIGN PROSTATIC HYPERPLASIA
     Route: 048
     Dates: end: 20091219
  4. RADEN [Concomitant]
     Indication: GASTRITIS
     Route: 048
     Dates: end: 20091219
  5. SORENTMIN [Concomitant]
     Indication: INSOMNIA
     Route: 048
     Dates: end: 20091219
  6. NU-LOTAN [Concomitant]
     Indication: HYPERTENSION
     Route: 048
     Dates: start: 20061003, end: 20091219
  7. AMLODIPINE [Concomitant]
     Indication: HYPERTENSION
     Route: 048
     Dates: start: 20070710, end: 20091219
  8. GLYMACKEN [Concomitant]
     Indication: MENINGITIS BACTERIAL
     Dates: start: 20091113, end: 20091117
  9. LASIX [Concomitant]
     Indication: CARDIAC FAILURE
     Dates: start: 20091118, end: 20091124
  10. LASIX [Concomitant]
     Dates: start: 20091125, end: 20091201
  11. LASIX [Concomitant]
     Route: 048
     Dates: start: 20091204
  12. OMERAP [Concomitant]
     Indication: GASTRIC ULCER
     Route: 048
     Dates: start: 20091120, end: 20091218
  13. FERROMIA [Concomitant]
     Indication: IRON DEFICIENCY ANAEMIA
     Route: 048
     Dates: start: 20091120
  14. DICANON [Concomitant]
     Indication: GASTRIC ULCER
     Route: 048
     Dates: start: 20091120, end: 20091204
  15. DICANON [Concomitant]
     Route: 048
     Dates: start: 20091204, end: 20091211
  16. ALLOID G [Concomitant]
     Indication: GASTRIC ULCER
     Route: 048
     Dates: start: 20091120, end: 20091204
  17. FULCALIQ [Concomitant]
     Indication: ALTERED STATE OF CONSCIOUSNESS
     Route: 048
     Dates: start: 20091122, end: 20091201
  18. MAGMITT [Concomitant]
     Indication: CONSTIPATION
     Route: 048
     Dates: start: 20091205
  19. SEFTAC [Concomitant]
     Indication: GASTRIC ULCER
     Route: 048
     Dates: start: 20091218

REACTIONS (2)
  - CARDIAC FAILURE [None]
  - INTERSTITIAL LUNG DISEASE [None]
